FAERS Safety Report 4957740-5 (Version None)
Quarter: 2006Q1

REPORT INFORMATION
  Report Type: 
  Country: None (occurrence: None)
  Receive Date: 20060324
  Receipt Date: 20060313
  Transmission Date: 20060701
  Serious: Yes (Hospitalization)
  Sender: FDA-Public Use
  Company Number: 2006037350

PATIENT
  Age: 67 Year
  Sex: Female

DRUGS (7)
  1. ALDACTAZIDE [Suspect]
     Indication: ILL-DEFINED DISORDER
     Dates: start: 20050801
  2. LASIX [Concomitant]
  3. GLUCOVANCE [Concomitant]
  4. ALPRAZOLAM [Concomitant]
  5. POTASSIUM CHLORIDE [Concomitant]
  6. ZOLOFT [Concomitant]
  7. PREVACID (LANSPORAZOLE) [Concomitant]

REACTIONS (6)
  - BLISTER [None]
  - HYPOKALAEMIA [None]
  - HYPONATRAEMIA [None]
  - HYPOTENSION [None]
  - OEDEMA PERIPHERAL [None]
  - WRONG DRUG ADMINISTERED [None]
